FAERS Safety Report 20254048 (Version 2)
Quarter: 2022Q1

REPORT INFORMATION
  Report Type: Other
  Country: BR (occurrence: BR)
  Receive Date: 20211230
  Receipt Date: 20220117
  Transmission Date: 20220424
  Serious: Yes (Other)
  Sender: FDA-Public Use
  Company Number: BR-002147023-NVSC2021BR279076

PATIENT
  Age: 20 Year
  Sex: Female

DRUGS (7)
  1. XOLAIR [Suspect]
     Active Substance: OMALIZUMAB
     Indication: Product used for unknown indication
     Dosage: 300 MG EVERY 4 WEEKS
     Route: 058
     Dates: start: 201708
  2. XOLAIR [Suspect]
     Active Substance: OMALIZUMAB
     Dosage: UNK
     Route: 065
     Dates: start: 201901, end: 202003
  3. DESLORATADINE [Concomitant]
     Active Substance: DESLORATADINE
  4. MONTELUKAST [Concomitant]
     Active Substance: MONTELUKAST SODIUM
     Indication: Product used for unknown indication
     Dosage: 10 MG, QD
     Route: 065
  5. LORATADINE [Concomitant]
     Active Substance: LORATADINE
     Indication: Chronic spontaneous urticaria
     Dosage: 10 MG, UP TO 4 TABLETS A DAY, IF NEEDED
     Route: 065
  6. LORATADINE [Concomitant]
     Active Substance: LORATADINE
     Dates: start: 201701, end: 202004
  7. PREDNISONE [Concomitant]
     Active Substance: PREDNISONE
     Indication: Product used for unknown indication
     Dosage: 20 MG IN EXACERBATIONS
     Route: 065

REACTIONS (13)
  - Angioedema [Recovered/Resolved]
  - Cholestasis of pregnancy [Unknown]
  - Somnambulism [Recovered/Resolved]
  - Acarodermatitis [Unknown]
  - Skin abrasion [Unknown]
  - Papule [Recovered/Resolved]
  - Pruritus [Recovered/Resolved]
  - Polymorphic eruption of pregnancy [Unknown]
  - Psychiatric symptom [Recovered/Resolved]
  - Urticaria [Unknown]
  - Skin lesion [Recovered/Resolved]
  - Maternal exposure during pregnancy [Unknown]
  - Drug ineffective [Recovered/Resolved]

NARRATIVE: CASE EVENT DATE: 20181201
